FAERS Safety Report 4707639-4 (Version None)
Quarter: 2005Q3

REPORT INFORMATION
  Report Type: 
  Country: None (occurrence: None)
  Receive Date: 20050705
  Receipt Date: 20050617
  Transmission Date: 20060218
  Serious: Yes (Death, Other)
  Sender: FDA-Public Use
  Company Number: 2005-01125

PATIENT
  Age: 72 Year
  Sex: Female

DRUGS (2)
  1. VELCADE [Suspect]
     Indication: MULTIPLE MYELOMA
     Dosage: 1.80 MG 2/WEEK INTRAVENOUS
     Route: 042
     Dates: start: 20050228, end: 20050304
  2. FOSAMAX [Concomitant]

REACTIONS (5)
  - ASTHENIA [None]
  - CARDIAC FAILURE [None]
  - DISEASE PROGRESSION [None]
  - RENAL FAILURE [None]
  - THROMBOCYTOPENIA [None]
